FAERS Safety Report 15453892 (Version 2)
Quarter: 2018Q4

REPORT INFORMATION
  Report Type: Spontaneous
  Country: JP (occurrence: JP)
  Receive Date: 20181001
  Receipt Date: 20181124
  Transmission Date: 20190204
  Serious: Yes (Other)
  Sender: FDA-Public Use
  Company Number: PHJP2018JP017055

PATIENT
  Sex: Male

DRUGS (2)
  1. EXELON PATCH [Suspect]
     Active Substance: RIVASTIGMINE
     Indication: DEMENTIA ALZHEIMER^S TYPE
     Dosage: UNK
     Route: 062
  2. TRAZODONE [Concomitant]
     Active Substance: TRAZODONE HYDROCHLORIDE
     Indication: DEMENTIA
     Dosage: UNK
     Route: 065

REACTIONS (7)
  - Dementia [Unknown]
  - Therapy non-responder [Unknown]
  - Muscular weakness [Unknown]
  - Radiation injury [Unknown]
  - Bradycardia [Unknown]
  - Brain stem syndrome [Unknown]
  - Lymphoma [Unknown]
